FAERS Safety Report 4711316-3 (Version None)
Quarter: 2005Q3

REPORT INFORMATION
  Report Type: 
  Country: None (occurrence: None)
  Receive Date: 20050711
  Receipt Date: 20050627
  Transmission Date: 20060218
  Serious: Yes (Hospitalization, Other)
  Sender: FDA-Public Use
  Company Number: CHPA2003US02260

PATIENT
  Age: 35 Year
  Sex: Female
  Weight: 90.7 kg

DRUGS (20)
  1. EX-LAX UNKNOWN (NCH)  (UNKNOWN) UNKNOWN [Suspect]
     Dosage: ORAL
     Route: 048
  2. FEEN-A-MINT (PHENOLPHTHALEIN) [Suspect]
     Dosage: ORAL
     Route: 048
  3. CORRECTOL [Suspect]
     Dosage: ORAL
     Route: 048
  4. ALPRAZOLAM [Concomitant]
  5. AVASTIN [Concomitant]
  6. NORMOCYTE PLUS [Concomitant]
  7. CLONIDINE [Concomitant]
  8. NIFEDIPINE [Concomitant]
  9. PRILOSEC [Concomitant]
  10. BIAXIN [Concomitant]
  11. CLEOCIN [Concomitant]
  12. MAGNESIUM OXIDE (MAGNESIUM OXIDE) [Concomitant]
  13. K-DUR 10 [Concomitant]
  14. TYLENOL [Concomitant]
  15. DARVOCET-N 100 [Concomitant]
  16. REGLAN/USA/ (METOCLOPRAMIDE HYDROCHLORIDE) [Concomitant]
  17. CARAFATE [Concomitant]
  18. AZTREONAM (AZTREONAM) [Concomitant]
  19. NEUTRA-PHOS (POTASSIUM PHOSPHATE DIBASIC, POTASSIUM PHOSPHATE MONOBASI [Concomitant]
  20. PEPCID [Concomitant]

REACTIONS (48)
  - ABDOMINAL ADHESIONS [None]
  - ABDOMINAL DISTENSION [None]
  - ALOPECIA [None]
  - ANAEMIA [None]
  - ANXIETY [None]
  - BACK PAIN [None]
  - CHEST DISCOMFORT [None]
  - CHOLELITHIASIS [None]
  - COLD SWEAT [None]
  - COLON CANCER STAGE IV [None]
  - CONSTIPATION [None]
  - DEHYDRATION [None]
  - DEPRESSION [None]
  - DIARRHOEA [None]
  - DRUG DEPENDENCE [None]
  - DYSURIA [None]
  - ECONOMIC PROBLEM [None]
  - ELECTROLYTE IMBALANCE [None]
  - GASTRITIS [None]
  - HELICOBACTER INFECTION [None]
  - HEPATIC HAEMORRHAGE [None]
  - HEPATIC STEATOSIS [None]
  - HYPOVOLAEMIA [None]
  - ILEUS [None]
  - INTESTINAL OBSTRUCTION [None]
  - INTESTINAL STOMA COMPLICATION [None]
  - JAUNDICE [None]
  - LUNG NEOPLASM [None]
  - MALNUTRITION [None]
  - MELANOSIS COLI [None]
  - MENORRHAGIA [None]
  - METASTASES TO LIVER [None]
  - NAUSEA [None]
  - OBESITY [None]
  - OVARIAN CYST [None]
  - PARAESTHESIA [None]
  - PELVIC INFLAMMATORY DISEASE [None]
  - PLEURAL EFFUSION [None]
  - POSTOPERATIVE HERNIA [None]
  - RENAL FAILURE ACUTE [None]
  - SKIN ATROPHY [None]
  - SWELLING [None]
  - SYNCOPE [None]
  - URINARY TRACT INFECTION [None]
  - URINARY TRACT OBSTRUCTION [None]
  - UTERINE POLYP [None]
  - VOMITING [None]
  - WOUND INFECTION [None]
